FAERS Safety Report 25526105 (Version 8)
Quarter: 2025Q4

REPORT INFORMATION
  Report Type: Report from Study
  Country: EU (occurrence: EU)
  Receive Date: 20250707
  Receipt Date: 20251022
  Transmission Date: 20260118
  Serious: Yes (Hospitalization)
  Sender: ABBVIE
  Company Number: EU-ABBVIE-6359017

PATIENT
  Age: 76 Year
  Sex: Female
  Weight: 45 kg

DRUGS (4)
  1. CARBIDOPA [Suspect]
     Active Substance: CARBIDOPA
     Indication: Parkinson^s disease
     Dosage: CONTINUOUS DOSE: 3.4 ML/H
     Route: 050
     Dates: start: 20210708, end: 202506
  2. CARBIDOPA [Suspect]
     Active Substance: CARBIDOPA
     Dosage: CONTINUOUS DOSE DECREASED TO 3.1 ML/H?START DATE- 2025, DISCONTINUED IN 2025
     Route: 050
  3. BENSERAZIDE HYDROCHLORIDE\LEVODOPA [Concomitant]
     Active Substance: BENSERAZIDE HYDROCHLORIDE\LEVODOPA
     Indication: Product used for unknown indication
     Dosage: HALF OF THE MEDICATION
  4. BENSERAZIDE HYDROCHLORIDE\LEVODOPA [Concomitant]
     Active Substance: BENSERAZIDE HYDROCHLORIDE\LEVODOPA
     Indication: Product used for unknown indication

REACTIONS (11)
  - Hip fracture [Not Recovered/Not Resolved]
  - Stoma site infection [Recovering/Resolving]
  - Emotional distress [Not Recovered/Not Resolved]
  - Stoma site discharge [Recovering/Resolving]
  - Cognitive disorder [Unknown]
  - Medical device discomfort [Unknown]
  - Parkinson^s disease [Unknown]
  - Nervousness [Not Recovered/Not Resolved]
  - Fall [Not Recovered/Not Resolved]
  - Stoma site odour [Recovering/Resolving]
  - Bedridden [Not Recovered/Not Resolved]

NARRATIVE: CASE EVENT DATE: 20250626
